FAERS Safety Report 15206409 (Version 1)
Quarter: 2018Q3

REPORT INFORMATION
  Report Type: Spontaneous
  Country: US (occurrence: US)
  Receive Date: 20180727
  Receipt Date: 20180727
  Transmission Date: 20181010
  Serious: No
  Sender: FDA-Public Use
  Company Number: US-LUPIN PHARMACEUTICALS INC.-2018-04442

PATIENT
  Age: 67 Year
  Sex: Male

DRUGS (4)
  1. MIRTAZAPINE. [Suspect]
     Active Substance: MIRTAZAPINE
     Indication: MAJOR DEPRESSION
     Dosage: 45 MG, UNK
     Route: 065
  2. BUPROPION HYDROCHLORIDE EXTENDED?RELEASE TABLETS [Suspect]
     Active Substance: BUPROPION HYDROCHLORIDE
     Indication: POST-TRAUMATIC STRESS DISORDER
     Dosage: TWICE DAILY (12 HOURS)
     Route: 065
  3. MIRTAZAPINE. [Suspect]
     Active Substance: MIRTAZAPINE
     Indication: POST-TRAUMATIC STRESS DISORDER
     Dosage: 45 MG, UNK
     Route: 065
  4. BUPROPION HYDROCHLORIDE EXTENDED?RELEASE TABLETS [Suspect]
     Active Substance: BUPROPION HYDROCHLORIDE
     Indication: MAJOR DEPRESSION
     Dosage: ONCE DAILY
     Route: 065

REACTIONS (5)
  - Rapid eye movement sleep behaviour disorder [Recovering/Resolving]
  - Nightmare [Recovering/Resolving]
  - Insomnia [Recovering/Resolving]
  - Abnormal behaviour [Recovering/Resolving]
  - Somnambulism [Recovering/Resolving]
